FAERS Safety Report 10891978 (Version 2)
Quarter: 2015Q4

REPORT INFORMATION
  Report Type: Spontaneous
  Country: US (occurrence: US)
  Receive Date: 20150306
  Receipt Date: 20151113
  Transmission Date: 20160304
  Serious: Yes (Other)
  Sender: FDA-Public Use
  Company Number: US-JNJFOC-20150303787

PATIENT
  Age: 15 Year
  Sex: Male

DRUGS (6)
  1. RISPERDAL [Suspect]
     Active Substance: RISPERIDONE
     Indication: BIPOLAR DISORDER
     Route: 048
     Dates: start: 20100717, end: 20111115
  2. RISPERDAL [Suspect]
     Active Substance: RISPERIDONE
     Indication: BIPOLAR DISORDER
     Route: 048
     Dates: start: 20091016, end: 20100422
  3. RISPERDAL [Suspect]
     Active Substance: RISPERIDONE
     Indication: BRAIN INJURY
     Route: 048
     Dates: start: 20100717, end: 20111115
  4. RISPERDAL [Suspect]
     Active Substance: RISPERIDONE
     Indication: BRAIN INJURY
     Route: 048
     Dates: start: 20100225, end: 20100625
  5. RISPERDAL [Suspect]
     Active Substance: RISPERIDONE
     Indication: BRAIN INJURY
     Route: 048
     Dates: start: 20091016, end: 20100422
  6. RISPERDAL [Suspect]
     Active Substance: RISPERIDONE
     Indication: BIPOLAR DISORDER
     Route: 048
     Dates: start: 20100225, end: 20100625

REACTIONS (3)
  - Abnormal weight gain [Unknown]
  - Hyperprolactinaemia [Unknown]
  - Gynaecomastia [Unknown]

NARRATIVE: CASE EVENT DATE: 20111109
